FAERS Safety Report 5434133-8 (Version None)
Quarter: 2007Q3

REPORT INFORMATION
  Report Type: 
  Country: None (occurrence: None)
  Receive Date: 20070831
  Receipt Date: 20070723
  Transmission Date: 20080115
  Serious: No
  Sender: FDA-Public Use
  Company Number: A0664781A

PATIENT
  Age: 52 Year
  Sex: Female

DRUGS (1)
  1. ALLI [Suspect]
     Dates: start: 20070711, end: 20070717

REACTIONS (3)
  - ORAL MUCOSAL BLISTERING [None]
  - PURULENT DISCHARGE [None]
  - TONGUE DISCOLOURATION [None]
